FAERS Safety Report 9174003 (Version 1)
Quarter: 2013Q1

REPORT INFORMATION
  Report Type: Spontaneous
  Country: US (occurrence: None)
  Receive Date: 20130313
  Receipt Date: 20130313
  Transmission Date: 20140127
  Serious: Yes (Other)
  Sender: FDA-Public Use
  Company Number: 2013P1002769

PATIENT
  Age: 22 Year
  Sex: Female
  Weight: 122.47 kg

DRUGS (2)
  1. FENTANYL [Suspect]
     Indication: LABOUR PAIN
     Dosage: IN 8 MINUTES
     Route: 008
     Dates: start: 20121004, end: 20121004
  2. FENTANYL [Suspect]
     Dosage: IN 8 MINUTES
     Route: 008
     Dates: start: 20121004, end: 20121004

REACTIONS (4)
  - Device infusion issue [None]
  - Incorrect dose administered [None]
  - Postpartum haemorrhage [None]
  - Exposure during pregnancy [None]
